APPROVED DRUG PRODUCT: DEPOCYT
Active Ingredient: CYTARABINE
Strength: 10MG/ML
Dosage Form/Route: INJECTABLE, LIPOSOMAL;INJECTION
Application: N021041 | Product #001
Applicant: PACIRA PHARMACEUTICALS INC
Approved: Apr 1, 1999 | RLD: Yes | RS: No | Type: DISCN